FAERS Safety Report 14486167 (Version 1)
Quarter: 2018Q1

REPORT INFORMATION
  Report Type: Spontaneous
  Country: US (occurrence: US)
  Receive Date: 20180203
  Receipt Date: 20180203
  Transmission Date: 20180509
  Serious: Yes (Other)
  Sender: FDA-Public Use
  Company Number: None

PATIENT
  Age: 44 Year
  Sex: Female
  Weight: 72 kg

DRUGS (15)
  1. WOMEN^S ONE A DAY 50+ [Concomitant]
  2. PRAVASTATIN. [Concomitant]
     Active Substance: PRAVASTATIN
  3. ESOMEPRAZOLE MAGNESIUM. [Concomitant]
     Active Substance: ESOMEPRAZOLE MAGNESIUM
  4. TYLENOL [Concomitant]
     Active Substance: ACETAMINOPHEN
  5. OSELTAMIVIR PHOSPHATE CAPSULES USP [Suspect]
     Active Substance: OSELTAMIVIR PHOSPHATE
     Indication: INFLUENZA
     Dosage: ?          QUANTITY:10 CAPSULE(S);?
     Route: 048
     Dates: start: 20180129, end: 20180202
  6. LORAZEPAM. [Concomitant]
     Active Substance: LORAZEPAM
  7. LITHIUM. [Concomitant]
     Active Substance: LITHIUM
  8. FENOFIBRATE. [Concomitant]
     Active Substance: FENOFIBRATE
  9. SYNTHROID [Concomitant]
     Active Substance: LEVOTHYROXINE SODIUM
  10. LARIN FE [Concomitant]
     Active Substance: ETHINYL ESTRADIOL\NORETHINDRONE ACETATE
  11. TUMS [Concomitant]
     Active Substance: CALCIUM CARBONATE
  12. IBUPROFEN. [Concomitant]
     Active Substance: IBUPROFEN
  13. LACTASE [Concomitant]
     Active Substance: LACTASE
  14. BEANO [Concomitant]
     Active Substance: ASPERGILLUS NIGER .ALPHA.-GALACTOSIDASE
  15. COQ10 [Concomitant]
     Active Substance: UBIDECARENONE

REACTIONS (15)
  - Paranoia [None]
  - Product label confusion [None]
  - Restless legs syndrome [None]
  - Nightmare [None]
  - Dizziness [None]
  - Blister [None]
  - Thinking abnormal [None]
  - Tremor [None]
  - Tinnitus [None]
  - Hypersensitivity [None]
  - Insomnia [None]
  - Agitation [None]
  - Flushing [None]
  - Accidental underdose [None]
  - Heart rate increased [None]

NARRATIVE: CASE EVENT DATE: 20180201
